FAERS Safety Report 19760319 (Version 2)
Quarter: 2021Q4

REPORT INFORMATION
  Report Type: Spontaneous
  Country: US (occurrence: US)
  Receive Date: 20210830
  Receipt Date: 20211230
  Transmission Date: 20220303
  Serious: Yes (Hospitalization, Other)
  Sender: FDA-Public Use
  Company Number: US-NOVOPROD-841254

PATIENT
  Age: 66 Year
  Sex: Female

DRUGS (1)
  1. TRESIBA [Suspect]
     Active Substance: INSULIN DEGLUDEC
     Indication: Diabetes mellitus
     Dosage: 12 IU, QD
     Route: 058
     Dates: start: 2019

REACTIONS (3)
  - Nephrolithiasis [Not Recovered/Not Resolved]
  - Pancreatic atrophy [Not Recovered/Not Resolved]
  - Obstructive pancreatitis [Unknown]

NARRATIVE: CASE EVENT DATE: 20210801
